FAERS Safety Report 8498667-4 (Version None)
Quarter: 2012Q3

REPORT INFORMATION
  Report Type: 
  Country: None (occurrence: None)
  Receive Date: 20120709
  Receipt Date: 20120626
  Transmission Date: 20120928
  Serious: No
  Sender: FDA-Public Use
  Company Number: US-AMGEN-USASP2011057855

PATIENT
  Age: 56 Year
  Sex: Female
  Weight: 111 kg

DRUGS (2)
  1. ARAVA [Concomitant]
     Dosage: 1 MG, UNK
     Dates: start: 20110401
  2. ENBREL [Suspect]
     Indication: RHEUMATOID ARTHRITIS
     Dosage: 50 MG, QWK
     Route: 058
     Dates: start: 20110921

REACTIONS (7)
  - FEELING ABNORMAL [None]
  - RASH GENERALISED [None]
  - DIZZINESS [None]
  - RASH PRURITIC [None]
  - NAUSEA [None]
  - NASOPHARYNGITIS [None]
  - FUNGAL INFECTION [None]
